FAERS Safety Report 6169280-9 (Version None)
Quarter: 2009Q2

REPORT INFORMATION
  Report Type: 
  Country: None (occurrence: None)
  Receive Date: 20090427
  Receipt Date: 20090422
  Transmission Date: 20091009
  Serious: Yes (Other)
  Sender: FDA-Public Use
  Company Number: CH-GILEAD-2009-0021606

PATIENT
  Age: 48 Year
  Sex: Female

DRUGS (1)
  1. VIREAD [Suspect]
     Indication: DRUG USE FOR UNKNOWN INDICATION

REACTIONS (1)
  - OSTEOPOROSIS [None]
